FAERS Safety Report 21373207 (Version 2)
Quarter: 2022Q4

REPORT INFORMATION
  Report Type: Spontaneous
  Country: US (occurrence: US)
  Receive Date: 20220924
  Receipt Date: 20221223
  Transmission Date: 20230113
  Serious: No
  Sender: FDA-Public Use
  Company Number: US-CTI BIOPHARMA-2022US02976

PATIENT

DRUGS (1)
  1. VONJO [Suspect]
     Active Substance: PACRITINIB
     Indication: Myelofibrosis
     Dosage: 200 MILLIGRAM, BID
     Route: 048
     Dates: start: 20220802

REACTIONS (11)
  - Tremor [Unknown]
  - Chills [Unknown]
  - Arthralgia [Unknown]
  - Peripheral swelling [Unknown]
  - Skin atrophy [None]
  - Decreased appetite [Unknown]
  - Abdominal distension [Unknown]
  - Flatulence [Unknown]
  - Feeling hot [Unknown]
  - Drug ineffective [Unknown]
  - Rash [Unknown]

NARRATIVE: CASE EVENT DATE: 20220816
